FAERS Safety Report 9610802 (Version 3)
Quarter: 2014Q1

REPORT INFORMATION
  Report Type: Spontaneous
  Country: US (occurrence: US)
  Receive Date: 20131009
  Receipt Date: 20140102
  Transmission Date: 20141002
  Serious: No
  Sender: FDA-Public Use
  Company Number: US-BAXTER-2013BAX037966

PATIENT
  Age: 62 Year
  Sex: Female

DRUGS (4)
  1. DIANEAL LOW CALCIUM [Suspect]
     Indication: PERITONEAL DIALYSIS
     Route: 033
     Dates: start: 20121228
  2. DIANEAL LOW CALCIUM [Suspect]
     Route: 033
     Dates: start: 20121228
  3. DIANEAL LOW CALCIUM [Suspect]
     Indication: PERITONEAL DIALYSIS
     Route: 033
     Dates: start: 20121228
  4. DIANEAL LOW CALCIUM [Suspect]
     Route: 033
     Dates: start: 20121228

REACTIONS (1)
  - Fluid overload [Recovering/Resolving]
